FAERS Safety Report 5836321-5 (Version None)
Quarter: 2008Q3

REPORT INFORMATION
  Report Type: 
  Country: None (occurrence: None)
  Receive Date: 20080805
  Receipt Date: 20080724
  Transmission Date: 20090109
  Serious: Yes (Other)
  Sender: FDA-Public Use
  Company Number: 2008AL007963

PATIENT
  Age: 53 Year
  Sex: Male
  Weight: 122.4712 kg

DRUGS (10)
  1. DIGOXIN [Suspect]
     Indication: ATRIAL FIBRILLATION
     Dosage: 0.125MG, QD, PO, STARTED 2005
     Route: 048
     Dates: start: 20050101
  2. PERCOCET [Concomitant]
  3. HYDROCHLORATHIAZIDE [Concomitant]
  4. VERAPAMIL [Concomitant]
  5. ASPIRIN [Concomitant]
  6. VALIUM [Concomitant]
  7. PROVIGIL [Concomitant]
  8. MULTI-VITAMIN [Concomitant]
  9. VITAMIN B [Concomitant]
  10. SYNTHROID [Concomitant]

REACTIONS (1)
  - NO ADVERSE EVENT [None]
